FAERS Safety Report 10910744 (Version 1)
Quarter: 2015Q1

REPORT INFORMATION
  Report Type: Spontaneous
  Country: US (occurrence: US)
  Receive Date: 20150312
  Receipt Date: 20150312
  Transmission Date: 20150721
  Serious: No
  Sender: FDA-Public Use
  Company Number: US-SA-2015SA014211

PATIENT
  Age: 70 Year
  Sex: Female

DRUGS (1)
  1. NASACORT ALLERGY 24HR [Suspect]
     Active Substance: TRIAMCINOLONE ACETONIDE
     Indication: SINUS CONGESTION
     Dosage: DOSE:2SPRAYS/NASAL
     Route: 045
     Dates: start: 201501, end: 201502

REACTIONS (2)
  - Ageusia [Recovered/Resolved]
  - Anosmia [Recovered/Resolved]
